FAERS Safety Report 14713798 (Version 2)
Quarter: 2018Q2

REPORT INFORMATION
  Report Type: Spontaneous
  Country: AT (occurrence: AT)
  Receive Date: 20180404
  Receipt Date: 20180404
  Transmission Date: 20180711
  Serious: Yes (Death, Life-Threatening, Hospitalization)
  Sender: FDA-Public Use
  Company Number: PHHY2018AT057421

PATIENT
  Age: 74 Year
  Sex: Male
  Weight: 60 kg

DRUGS (40)
  1. DEXAMETHASONE. [Suspect]
     Active Substance: DEXAMETHASONE
     Indication: PLASMA CELL MYELOMA
     Dosage: 20 MG, Q4W (20 MILLIGRAM)
     Route: 048
     Dates: start: 20161123, end: 20171003
  2. TORASEMIDE [Concomitant]
     Active Substance: TORSEMIDE
     Indication: OEDEMA PERIPHERAL
     Dosage: 10 MG, QD (10 MILLIGRAM)
     Route: 065
     Dates: start: 20171030
  3. AMLODILAN [Concomitant]
     Indication: HYPERTENSION
     Dosage: 5 MG, QD (10 MILLIGRAM)
     Route: 048
     Dates: start: 20161124
  4. ZOMETA [Concomitant]
     Active Substance: ZOLEDRONIC ACID
     Indication: BONE LESION
     Dosage: 4 MG, QMO (4 MILLIGRAM)
     Route: 058
     Dates: start: 20161123
  5. MUCOBENE [Concomitant]
     Indication: TOBACCO ABUSE
     Dosage: 600 MG, QD (600 MILLIGRAM)
     Route: 048
     Dates: start: 20161117
  6. KALIORAL [Concomitant]
     Indication: PRODUCT USED FOR UNKNOWN INDICATION
     Route: 065
  7. ENTEROBENE [Concomitant]
     Indication: DIARRHOEA
     Route: 048
  8. DIGIMERCK [Concomitant]
     Active Substance: DIGITOXIN
     Indication: ATRIAL FIBRILLATION
     Dosage: 0.07 MG, QD (.07 MILLIGRAM)
     Route: 048
     Dates: start: 20161125
  9. CLONIDINE. [Concomitant]
     Active Substance: CLONIDINE
     Indication: PRODUCT USED FOR UNKNOWN INDICATION
     Route: 065
  10. THROMBO ASS [Concomitant]
     Active Substance: ASPIRIN
     Indication: THROMBOSIS PROPHYLAXIS
     Dosage: 100 MG, QD (100 MILLIGRAM)
     Route: 048
     Dates: start: 20161123
  11. HYDAL [Concomitant]
     Active Substance: HYDROMORPHONE HYDROCHLORIDE
     Dosage: 1.3 MG, UNK (1.3 MILLIGRAM)
     Route: 048
  12. KCL ZYMA [Concomitant]
     Indication: ACUTE KIDNEY INJURY
     Dosage: UNK UNK, QD
     Route: 048
     Dates: start: 20161125
  13. MEXALEN [Concomitant]
     Active Substance: ACETAMINOPHEN
     Indication: BONE PAIN
     Dosage: 500 MILLIGRAM
     Route: 048
  14. AMLODIPINE [Concomitant]
     Active Substance: AMLODIPINE BESYLATE
     Indication: HYPERTENSION
     Dosage: 5 MG, QD (10 MILLIGRAM)
     Route: 048
     Dates: start: 20161124
  15. PASPERTIN (METOCLOPRAMIDE\POLIDOCANOL) [Concomitant]
     Active Substance: METOCLOPRAMIDE\POLIDOCANOL
     Indication: PROPHYLAXIS OF NAUSEA AND VOMITING
     Dosage: 10 MG, UNK
     Route: 048
  16. BERODUAL [Concomitant]
     Active Substance: FENOTEROL HYDROBROMIDE\IPRATROPIUM BROMIDE
     Indication: BRONCHITIS
  17. VALSARTAN. [Concomitant]
     Active Substance: VALSARTAN
     Indication: HYPERTENSION
     Dosage: 80 MG, QD (80 MILLIGRAM)
     Route: 048
     Dates: start: 20161125
  18. CAL D VITA [Concomitant]
     Indication: OSTEOPOROSIS PROPHYLAXIS
     Route: 048
     Dates: start: 20161117
  19. REVLIMID [Suspect]
     Active Substance: LENALIDOMIDE
     Indication: PLASMA CELL MYELOMA
     Dosage: 15 MG, QD (15 MILLIGRAM)
     Route: 048
     Dates: start: 201611
  20. TORASEMIDE [Concomitant]
     Active Substance: TORSEMIDE
     Dosage: 20 MG, QD (20 MILLIGRAM))
     Route: 065
     Dates: start: 20171027
  21. AMLODIPINE [Concomitant]
     Active Substance: AMLODIPINE BESYLATE
     Dosage: 10 MG, QD (10 MILLIGRAM)
     Route: 048
  22. BERODUAL [Concomitant]
     Active Substance: FENOTEROL HYDROBROMIDE\IPRATROPIUM BROMIDE
     Indication: DYSPNOEA
     Dosage: (1 UNSPECIFIED UNIT)
     Route: 055
  23. MIRTABENE [Concomitant]
     Active Substance: MIRTAZAPINE
     Indication: SLEEP DISORDER THERAPY
     Dosage: 15 MG, QD (15 MILLIGRAM)
     Route: 048
     Dates: start: 20161125
  24. MOLAXOLE [Concomitant]
     Active Substance: POLYETHYLENE GLYCOL 3350\POTASSIUM CHLORIDE\SODIUM BICARBONATE\SODIUM CHLORIDE
     Indication: CONSTIPATION PROPHYLAXIS
     Route: 048
  25. OLEOVIT D3 [Concomitant]
     Active Substance: CHOLECALCIFEROL
     Indication: OSTEOPOROSIS PROPHYLAXIS
     Dosage: UNK UNK, QD
     Route: 048
     Dates: start: 20161117
  26. MORPHINE HYDROCHLORIDE TRIHYDRATE [Concomitant]
     Active Substance: MORPHINE HYDROCHLORIDE
     Indication: BONE PAIN
     Dosage: 60 MG, QD (120 MILLIGRAM)
     Route: 048
     Dates: start: 20161121
  27. XYZALL [Concomitant]
     Active Substance: LEVOCETIRIZINE DIHYDROCHLORIDE
     Indication: RASH
     Dosage: 5 MG, UNK (5 MILLIGRAM)
     Route: 048
  28. GUTTALAX [Concomitant]
     Indication: CONSTIPATION PROPHYLAXIS
     Route: 048
  29. NICOTINELL [Concomitant]
     Active Substance: NICOTINE
     Indication: TOBACCO ABUSE
     Dosage: 14 MG, UNK
     Route: 061
  30. PANTOPRAZOLE [Concomitant]
     Active Substance: PANTOPRAZOLE
     Indication: ABDOMINAL PAIN UPPER
     Dosage: 40 MG, UNK (40 MILLIGRAM)
     Route: 048
  31. MORAPID [Concomitant]
     Indication: BONE PAIN
     Dosage: 10 MG, UNK
     Route: 048
  32. FOLSAN [Concomitant]
     Active Substance: FOLIC ACID
     Indication: PROPHYLAXIS
     Dosage: 5 MG, QD (5 MILLIGRAM)
     Route: 048
     Dates: start: 20161117
  33. SIMVASTATIN. [Concomitant]
     Active Substance: SIMVASTATIN
     Indication: HYPERLIPIDAEMIA
     Dosage: 40 MG, QD (40 MILLIGRAM)
     Route: 048
     Dates: start: 20161117
  34. NERISONA [Concomitant]
     Active Substance: DIFLUCORTOLONE VALERATE
     Indication: RASH
     Route: 061
  35. TRITTICO [Concomitant]
     Active Substance: TRAZODONE HYDROCHLORIDE
     Indication: SLEEP DISORDER THERAPY
     Dosage: 50 MG, QD (50 MILLIGRAM)
     Route: 048
  36. XANOR [Concomitant]
     Active Substance: ALPRAZOLAM
     Indication: PROPHYLAXIS
     Dosage: 0.5 MG, QD (.5 MILLIGRAM)
     Route: 048
     Dates: start: 20171025
  37. HYDAL [Concomitant]
     Active Substance: HYDROMORPHONE HYDROCHLORIDE
     Indication: BONE PAIN
     Dosage: 6 MG, QD (12 MILLIGRAM)
     Route: 048
     Dates: start: 20161125
  38. PASSEDAN-NERVENTROPFEN [Concomitant]
     Indication: PROPHYLAXIS
     Route: 048
  39. TAMSULOSIN [Concomitant]
     Active Substance: TAMSULOSIN
     Indication: URINARY RETENTION
     Dosage: 0.4 MG, QD (.4 MILLIGRAM)
     Route: 048
     Dates: start: 20170115
  40. ELIQUIS [Concomitant]
     Active Substance: APIXABAN
     Indication: THROMBOSIS PROPHYLAXIS
     Dosage: 2.5 MG, QD (5 MILLIGRAM)
     Route: 048
     Dates: start: 20170802

REACTIONS (3)
  - General physical health deterioration [Fatal]
  - Cardiac arrest [Recovered/Resolved]
  - Myocardial infarction [Fatal]

NARRATIVE: CASE EVENT DATE: 20171023
